FAERS Safety Report 5368774-3 (Version None)
Quarter: 2007Q2

REPORT INFORMATION
  Report Type: 
  Country: None (occurrence: None)
  Receive Date: 20070625
  Receipt Date: 20070622
  Transmission Date: 20071010
  Serious: Yes (Hospitalization, Disabling, Other)
  Sender: FDA-Public Use
  Company Number: US-BAYER-200710126BWH

PATIENT
  Age: 59 Year
  Sex: Male
  Weight: 79 kg

DRUGS (5)
  1. NEXAVAR [Suspect]
     Indication: LUNG SQUAMOUS CELL CARCINOMA STAGE UNSPECIFIED
     Dosage: TOTAL DAILY DOSE: 800 MG  UNIT DOSE: 200 MG
     Route: 048
     Dates: start: 20060930
  2. NEXIUM [Concomitant]
  3. COMBIVENT [Concomitant]
     Route: 055
  4. FORADIL [Concomitant]
     Route: 055
  5. LORCET-HD [Concomitant]

REACTIONS (5)
  - ABASIA [None]
  - CEREBRAL INFARCTION [None]
  - ENCEPHALOPATHY [None]
  - HEADACHE [None]
  - REVERSIBLE POSTERIOR LEUKOENCEPHALOPATHY SYNDROME [None]
